FAERS Safety Report 24417770 (Version 3)
Quarter: 2024Q4

REPORT INFORMATION
  Report Type: Report from Study
  Country: RU (occurrence: RU)
  Receive Date: 20241009
  Receipt Date: 20241015
  Transmission Date: 20250115
  Serious: Yes (Death, Other)
  Sender: NOVARTIS
  Company Number: RU-002147023-NVSC2024RU191501

PATIENT
  Age: 34 Year
  Sex: Male
  Weight: 110 kg

DRUGS (1)
  1. ASCIMINIB [Suspect]
     Active Substance: ASCIMINIB
     Indication: Philadelphia chromosome positive
     Dosage: 200 MG, BID
     Route: 048
     Dates: start: 202402, end: 202405

REACTIONS (3)
  - Blast cell crisis [Fatal]
  - Cerebrovascular accident [Fatal]
  - Hyperleukocytosis [Fatal]

NARRATIVE: CASE EVENT DATE: 20240601
